FAERS Safety Report 11215973 (Version 1)
Quarter: 2015Q2

REPORT INFORMATION
  Report Type: Spontaneous
  Country: CA (occurrence: CA)
  Receive Date: 20150624
  Receipt Date: 20150624
  Transmission Date: 20150821
  Serious: Yes (Death)
  Sender: FDA-Public Use
  Company Number: CA-ACTELION-A-NJ2015-119518

PATIENT
  Age: 71 Year
  Sex: Male
  Weight: 32.2 kg

DRUGS (1)
  1. CARIPUL [Suspect]
     Active Substance: EPOPROSTENOL
     Indication: PULMONARY ARTERIAL HYPERTENSION
     Dosage: UNK UNK, PER MIN
     Route: 042
     Dates: start: 20150605

REACTIONS (1)
  - Death [Fatal]

NARRATIVE: CASE EVENT DATE: 20150611
